FAERS Safety Report 10257412 (Version 1)
Quarter: 2014Q2

REPORT INFORMATION
  Report Type: Report from Study
  Country: CA (occurrence: None)
  Receive Date: 20140620
  Receipt Date: 20140620
  Transmission Date: 20141212
  Serious: Yes (Death, Hospitalization)
  Sender: FDA-Public Use
  Company Number: CA-015716

PATIENT
  Age: 86 Year
  Sex: Male

DRUGS (1)
  1. FIRMAGON /01764801/ (FIRMAGON) 80 MG (NOTSPECIFIED) [Suspect]
     Indication: PROSTATE CANCER
     Dosage: 1X/MONTH
     Route: 058
     Dates: start: 20131115, end: 20140511

REACTIONS (3)
  - Pain [None]
  - Malaise [None]
  - Metastases to bone [None]
